FAERS Safety Report 7982188 (Version 5)
Quarter: 2012Q4

REPORT INFORMATION
  Report Type: Report from Study
  Country: JP (occurrence: JP)
  Receive Date: 20110609
  Receipt Date: 20121130
  Transmission Date: 20130627
  Serious: Yes (Life-Threatening, Other)
  Sender: FDA-Public Use
  Company Number: PHHY2010JP55600

PATIENT
  Age: 51 Year
  Sex: Male
  Weight: 60 kg

DRUGS (16)
  1. AFINITOR [Suspect]
     Indication: METASTATIC RENAL CELL CARCINOMA
     Dosage: 10 mg, daily
     Route: 048
     Dates: start: 20100712, end: 20100816
  2. AFINITOR [Suspect]
     Dosage: 10 mg, daily
     Route: 048
     Dates: start: 20101206, end: 20101227
  3. AFINITOR [Suspect]
     Dosage: 10 mg/day
     Route: 048
     Dates: start: 20110117, end: 20120204
  4. AFINITOR [Suspect]
     Dosage: 10 mg/day
     Route: 048
     Dates: start: 20110214, end: 20110402
  5. AFINITOR [Suspect]
     Dosage: 10 mg per day
     Route: 048
     Dates: start: 20110411, end: 20110613
  6. AFINITOR [Suspect]
     Dosage: 10 mg, QD
     Route: 048
     Dates: start: 20110627
  7. INTERFERON ALFA [Concomitant]
     Dosage: 3000000 IU
     Dates: start: 199609
  8. SELOKEN [Concomitant]
     Indication: METASTATIC RENAL CELL CARCINOMA
     Dosage: 20 mg
     Route: 048
  9. FLENIED [Concomitant]
     Indication: METASTATIC RENAL CELL CARCINOMA
     Dosage: 100 mg
     Route: 048
  10. SELBEX [Concomitant]
     Indication: METASTATIC RENAL CELL CARCINOMA
     Dosage: 150 mg
     Route: 048
  11. BLOPRESS [Concomitant]
     Indication: METASTATIC RENAL CELL CARCINOMA
     Dosage: 4 mg, UNK
     Route: 048
  12. CALAN [Concomitant]
     Indication: METASTATIC RENAL CELL CARCINOMA
     Dosage: 1500 mg, UNK
     Route: 048
  13. PHOS BLOCK [Concomitant]
     Indication: METASTATIC RENAL CELL CARCINOMA
     Dosage: 1500 mg, UNK
     Route: 048
  14. KENTAN [Concomitant]
     Indication: METASTATIC RENAL CELL CARCINOMA
     Dosage: 60 mg, UNK
     Route: 048
  15. ASASION [Concomitant]
     Indication: METASTATIC RENAL CELL CARCINOMA
     Dosage: 0.25 mg, UNK
     Route: 048
  16. GASUISAN [Concomitant]
     Indication: METASTATIC RENAL CELL CARCINOMA
     Dosage: 20 mg, UNK
     Route: 048

REACTIONS (4)
  - General physical health deterioration [Unknown]
  - Sepsis [Recovered/Resolved]
  - Anal abscess [Recovered/Resolved]
  - Stomatitis [Recovering/Resolving]
